FAERS Safety Report 22373011 (Version 1)
Quarter: 2023Q2

REPORT INFORMATION
  Report Type: Spontaneous
  Country: US (occurrence: None)
  Receive Date: 20230526
  Receipt Date: 20230526
  Transmission Date: 20230722
  Serious: No
  Sender: FDA-Public Use
  Company Number: None

PATIENT
  Sex: Female

DRUGS (2)
  1. TREPROSTINIL [Suspect]
     Active Substance: TREPROSTINIL
     Indication: Pulmonary arterial hypertension
     Dosage: OTHER QUANTITY : 20NG/KG/MIM;?OTHER FREQUENCY : CONTINUOUS;?
     Route: 042
     Dates: start: 202212
  2. DEVICE [Suspect]
     Active Substance: DEVICE
     Indication: Pulmonary arterial hypertension
     Dosage: CONTINUOUS IV
     Route: 042
     Dates: start: 202211

REACTIONS (4)
  - Weight increased [None]
  - Product complaint [None]
  - Product quality issue [None]
  - Abdominal distension [None]
